FAERS Safety Report 5406467-4 (Version None)
Quarter: 2007Q3

REPORT INFORMATION
  Report Type: 
  Country: None (occurrence: None)
  Receive Date: 20070806
  Receipt Date: 20070727
  Transmission Date: 20080115
  Serious: Yes (Other)
  Sender: FDA-Public Use
  Company Number: US-ELI_LILLY_AND_COMPANY-US200707006574

PATIENT
  Sex: Female

DRUGS (1)
  1. EVISTA [Suspect]
     Indication: OSTEOPOROSIS
     Dosage: 60 MG, UNK
     Route: 048
     Dates: start: 20010101

REACTIONS (5)
  - BONE DENSITY DECREASED [None]
  - BONE PAIN [None]
  - FOOT FRACTURE [None]
  - FRACTURE [None]
  - LUNG NEOPLASM MALIGNANT [None]
